FAERS Safety Report 12354537 (Version 1)
Quarter: 2016Q2

REPORT INFORMATION
  Report Type: Spontaneous
  Country: US (occurrence: None)
  Receive Date: 20160510
  Receipt Date: 20160510
  Transmission Date: 20160815
  Serious: Yes (Hospitalization)
  Sender: FDA-Public Use
  Company Number: None

PATIENT
  Age: 65 Year
  Sex: Female

DRUGS (4)
  1. GABAPENTIN. [Concomitant]
     Active Substance: GABAPENTIN
  2. VENTOLIN [Concomitant]
     Active Substance: ALBUTEROL SULFATE
  3. CAPECITABINE 500MG TAB [Suspect]
     Active Substance: CAPECITABINE
     Indication: NEOPLASM MALIGNANT
     Dosage: 3 TABS QAM PO 7 D ON/7 D OFF
     Route: 048
     Dates: start: 201512
  4. HYDROMORPHON [Concomitant]
     Active Substance: HYDROMORPHONE

REACTIONS (3)
  - Therapy cessation [None]
  - Metastases to lung [None]
  - Pneumothorax [None]

NARRATIVE: CASE EVENT DATE: 201604
